FAERS Safety Report 9919955 (Version 1)
Quarter: 2014Q1

REPORT INFORMATION
  Report Type: Spontaneous
  Country: US (occurrence: US)
  Receive Date: 20140224
  Receipt Date: 20140224
  Transmission Date: 20141002
  Serious: No
  Sender: FDA-Public Use
  Company Number: US-BIOGENIDEC-2014BI015470

PATIENT
  Sex: Female
  Weight: 61 kg

DRUGS (12)
  1. TECFIDERA [Suspect]
     Indication: MULTIPLE SCLEROSIS
  2. TRAZODONE [Concomitant]
  3. CITALOPRAM [Concomitant]
  4. XANAX [Concomitant]
  5. TYLENOL [Concomitant]
  6. EXCEDRIN [Concomitant]
     Indication: HEADACHE
  7. ADVIL CONGESTION (IBUPROFEN/PHENYLEPHRINE) [Concomitant]
     Indication: HYPERSENSITIVITY
  8. ALLEGRA ALLERGY [Concomitant]
     Indication: HYPERSENSITIVITY
  9. ADVIL [Concomitant]
  10. METRONIAZOLE [Concomitant]
  11. HCG [Concomitant]
  12. VITAMIN B12 [Concomitant]

REACTIONS (7)
  - Miliaria [Unknown]
  - Headache [Not Recovered/Not Resolved]
  - Migraine [Not Recovered/Not Resolved]
  - Carpal tunnel syndrome [Not Recovered/Not Resolved]
  - Fatigue [Not Recovered/Not Resolved]
  - Hot flush [Unknown]
  - Flushing [Unknown]
